FAERS Safety Report 7031133-1 (Version None)
Quarter: 2010Q4

REPORT INFORMATION
  Report Type: 
  Country: None (occurrence: None)
  Receive Date: 20101006
  Receipt Date: 20100923
  Transmission Date: 20110411
  Serious: Yes (Hospitalization)
  Sender: FDA-Public Use
  Company Number: ZA-ABBOTT-10P-143-0675733-00

PATIENT
  Age: 8 Year
  Sex: Female

DRUGS (9)
  1. KALETRA [Suspect]
     Indication: HIV INFECTION
     Route: 048
     Dates: start: 20100501
  2. KALETRA [Suspect]
     Dates: start: 20041101
  3. AZT [Concomitant]
     Indication: ANTIRETROVIRAL THERAPY
     Dates: start: 20041101
  4. AZT [Concomitant]
     Dates: start: 20100501
  5. ABC [Concomitant]
     Indication: ANTIRETROVIRAL THERAPY
     Dates: start: 20100501
  6. LAMIVUDINE (EPIVIR HBV) [Concomitant]
     Indication: ANTIRETROVIRAL THERAPY
     Dates: start: 20041101
  7. LAMIVUDINE (EPIVIR HBV) [Concomitant]
     Dates: start: 20080601
  8. D4T [Concomitant]
     Indication: ANTIRETROVIRAL THERAPY
     Dates: start: 20080601
  9. EFAVIRENZ [Concomitant]
     Indication: ANTIRETROVIRAL THERAPY
     Dates: start: 20080601

REACTIONS (3)
  - DRUG DOSE OMISSION [None]
  - DRUG INTOLERANCE [None]
  - HOSPITALISATION [None]
